FAERS Safety Report 7084594-6 (Version None)
Quarter: 2010Q4

REPORT INFORMATION
  Report Type: 
  Country: None (occurrence: None)
  Receive Date: 20101104
  Receipt Date: 20101021
  Transmission Date: 20110411
  Serious: Yes (Other)
  Sender: FDA-Public Use
  Company Number: PHHY2010US72727

PATIENT
  Sex: Female
  Weight: 37.7 kg

DRUGS (5)
  1. MIACALCIN [Suspect]
     Indication: HYPERCALCAEMIA
     Dosage: 156 UNITS
     Route: 042
     Dates: start: 20101021, end: 20101021
  2. CARBIDOPA + LEVODOPA [Concomitant]
     Dosage: 25/100 TID
     Route: 048
  3. CALCIUM [Concomitant]
     Dosage: 500 MG, BID
     Route: 048
  4. AMLODIPINE [Concomitant]
     Dosage: 5 MG, QD
     Route: 048
  5. DONEPEZIL HCL [Concomitant]
     Dosage: 5 MG, QHS
     Route: 048

REACTIONS (2)
  - GLOMERULAR FILTRATION RATE DECREASED [None]
  - INCORRECT ROUTE OF DRUG ADMINISTRATION [None]
